FAERS Safety Report 6339611-5 (Version None)
Quarter: 2009Q3

REPORT INFORMATION
  Report Type: 
  Country: None (occurrence: None)
  Receive Date: 20090903
  Receipt Date: 20090831
  Transmission Date: 20100115
  Serious: Yes (Hospitalization, Disabling)
  Sender: FDA-Public Use
  Company Number: US-MERCK-0705USA01531

PATIENT
  Age: 51 Year
  Sex: Female
  Weight: 55 kg

DRUGS (7)
  1. FOSAMAX [Suspect]
     Indication: OSTEOPENIA
     Route: 048
     Dates: start: 20020501, end: 20050101
  2. FOSAMAX [Suspect]
     Route: 048
     Dates: start: 19990801, end: 20020501
  3. HORMONES (UNSPECIFIED) [Concomitant]
     Route: 065
     Dates: start: 19970101
  4. [THERAPY UNSPECIFIED] [Concomitant]
     Indication: RHEUMATOID ARTHRITIS
     Route: 065
     Dates: start: 19700101
  5. ENBREL [Concomitant]
     Route: 065
     Dates: start: 19700101
  6. MOBIC [Concomitant]
     Route: 065
     Dates: start: 19980101
  7. METHOTREXATE [Concomitant]
     Route: 065
     Dates: start: 19700101

REACTIONS (34)
  - ABDOMINAL PAIN UPPER [None]
  - ACQUIRED OESOPHAGEAL WEB [None]
  - BENIGN GASTRIC NEOPLASM [None]
  - BLOOD CHOLESTEROL INCREASED [None]
  - BONE MARROW DISORDER [None]
  - CHEST PAIN [None]
  - CHOLECYSTITIS CHRONIC [None]
  - EAR PAIN [None]
  - ELECTROCARDIOGRAM ST-T CHANGE [None]
  - ERUCTATION [None]
  - EYE SWELLING [None]
  - FACE INJURY [None]
  - FALL [None]
  - FIBROMYALGIA [None]
  - FISTULA [None]
  - GALLBLADDER DISORDER [None]
  - GASTROOESOPHAGEAL REFLUX DISEASE [None]
  - HAEMATOCHEZIA [None]
  - HAEMORRHOIDS [None]
  - HERPES VIRUS INFECTION [None]
  - INSOMNIA [None]
  - OESOPHAGEAL STENOSIS [None]
  - ORAL FIBROMA [None]
  - OSTEONECROSIS [None]
  - PAIN [None]
  - PARAESTHESIA [None]
  - PHLEBITIS SUPERFICIAL [None]
  - POLYP [None]
  - PULPITIS DENTAL [None]
  - RECTAL HAEMORRHAGE [None]
  - RESORPTION BONE INCREASED [None]
  - SINUS BRADYCARDIA [None]
  - TOOTH LOSS [None]
  - VITAMIN B12 DEFICIENCY [None]
